FAERS Safety Report 25758190 (Version 1)
Quarter: 2025Q3

REPORT INFORMATION
  Report Type: Spontaneous
  Country: EU (occurrence: EU)
  Receive Date: 20250904
  Receipt Date: 20250904
  Transmission Date: 20251021
  Serious: Yes (Hospitalization)
  Sender: BIOGEN
  Company Number: None

PATIENT
  Age: 68 Year
  Sex: Female

DRUGS (1)
  1. TECFIDERA [Suspect]
     Active Substance: DIMETHYL FUMARATE
     Indication: Multiple sclerosis
     Dosage: TECFIDERA 240 MG 1 TABLET TWICE DAILY
     Route: 050
     Dates: start: 202304, end: 20250606

REACTIONS (1)
  - Colorectal adenoma [Unknown]

NARRATIVE: CASE EVENT DATE: 20250513
